FAERS Safety Report 7588901-7 (Version None)
Quarter: 2011Q3

REPORT INFORMATION
  Report Type: 
  Country: None (occurrence: None)
  Receive Date: 20110705
  Receipt Date: 20110624
  Transmission Date: 20111222
  Serious: Yes (Other)
  Sender: FDA-Public Use
  Company Number: US-JNJFOC-20110611757

PATIENT
  Sex: Female
  Weight: 88.45 kg

DRUGS (6)
  1. IMITREX [Concomitant]
     Indication: HEADACHE
     Route: 048
  2. DURAGESIC-100 [Suspect]
     Indication: CLUSTER HEADACHE
     Route: 062
  3. DURAGESIC-100 [Suspect]
     Route: 062
     Dates: start: 20050101
  4. DURAGESIC-100 [Suspect]
     Indication: BACK PAIN
     Route: 062
  5. ATENOLOL [Concomitant]
     Indication: HYPERTENSION
     Route: 048
  6. NEXIUM [Concomitant]
     Indication: GASTROOESOPHAGEAL REFLUX DISEASE
     Route: 048

REACTIONS (4)
  - PRODUCT ADHESION ISSUE [None]
  - PRODUCT QUALITY ISSUE [None]
  - CUTANEOUS LUPUS ERYTHEMATOSUS [None]
  - WRONG TECHNIQUE IN DRUG USAGE PROCESS [None]
